FAERS Safety Report 7298266-6 (Version None)
Quarter: 2011Q1

REPORT INFORMATION
  Report Type: 
  Country: None (occurrence: None)
  Receive Date: 20110217
  Receipt Date: 20100226
  Transmission Date: 20110831
  Serious: No
  Sender: FDA-Public Use
  Company Number: US-PFIZER INC-2010026149

PATIENT
  Sex: Female
  Weight: 76.2 kg

DRUGS (3)
  1. ATENOLOL [Concomitant]
     Dosage: UNK
  2. ALPHAGAN [Concomitant]
     Dosage: UNK
  3. XALATAN [Suspect]
     Indication: GLAUCOMA
     Dosage: UNK
     Dates: start: 20091201

REACTIONS (4)
  - FATIGUE [None]
  - SKIN DISORDER [None]
  - DARK CIRCLES UNDER EYES [None]
  - WEIGHT INCREASED [None]
